FAERS Safety Report 8104661-5 (Version None)
Quarter: 2012Q1

REPORT INFORMATION
  Report Type: 
  Country: None (occurrence: None)
  Receive Date: 20120130
  Receipt Date: 20120126
  Transmission Date: 20120608
  Serious: Yes (Death, Disabling, Other)
  Sender: FDA-Public Use
  Company Number: PHHY2011US19546

PATIENT
  Sex: Female
  Weight: 51 kg

DRUGS (11)
  1. MS CONTIN [Concomitant]
     Route: 048
  2. PREVACID [Concomitant]
     Route: 048
  3. PREDNISONE TAB [Concomitant]
     Route: 048
  4. COREG [Concomitant]
  5. NAPROXEN (ALEVE) [Concomitant]
  6. ASPIRIN [Concomitant]
  7. PROCRIT [Concomitant]
     Indication: ANAEMIA
     Dosage: 60000 IU, QW
     Route: 058
  8. MULTI-VITAMINS [Concomitant]
  9. CALCIUM [Concomitant]
  10. EXJADE [Suspect]
     Indication: IRON OVERLOAD
     Dosage: 500 MG, DAILY
     Route: 048
     Dates: start: 20110228
  11. MORPHINE SULFATE [Concomitant]
     Route: 048

REACTIONS (12)
  - FATIGUE [None]
  - CONSTIPATION [None]
  - RECTAL CANCER [None]
  - PELVIC ABSCESS [None]
  - PROCTALGIA [None]
  - IRRITABLE BOWEL SYNDROME [None]
  - DIARRHOEA [None]
  - SEPSIS [None]
  - ASTHENIA [None]
  - PAIN [None]
  - PYREXIA [None]
  - HEADACHE [None]
